FAERS Safety Report 17555702 (Version 2)
Quarter: 2020Q1

REPORT INFORMATION
  Report Type: Spontaneous
  Country: CN (occurrence: CN)
  Receive Date: 20200318
  Receipt Date: 20200323
  Transmission Date: 20200409
  Serious: Yes (Hospitalization)
  Sender: FDA-Public Use
  Company Number: CN-JNJFOC-20200314281

PATIENT
  Age: 19 Year
  Sex: Male

DRUGS (4)
  1. RIVAROXABAN [Suspect]
     Active Substance: RIVAROXABAN
     Dosage: THE FIRST DAY 10 MG PER DAY, THE SECOND AND THE THIRD DAY 5 MG PER DAY
     Route: 048
     Dates: start: 20190101, end: 20200112
  2. RIVAROXABAN [Suspect]
     Active Substance: RIVAROXABAN
     Indication: CEREBRAL VENOUS SINUS THROMBOSIS
     Dosage: 10 MG, QD
     Route: 048
     Dates: start: 201710, end: 20181231
  3. LAMOTRIGINE. [Concomitant]
     Active Substance: LAMOTRIGINE
     Dosage: 50 MG, BID
  4. FOLIC ACID. [Concomitant]
     Active Substance: FOLIC ACID
     Dosage: 0.8 MG, QD

REACTIONS (15)
  - Pneumonia [Unknown]
  - Prothrombin time prolonged [Recovered/Resolved]
  - Blood bilirubin unconjugated increased [Recovering/Resolving]
  - Prothrombin level decreased [Recovered/Resolved]
  - Blood albumin increased [Unknown]
  - Activated partial thromboplastin time prolonged [Not Recovered/Not Resolved]
  - Thrombin time shortened [Unknown]
  - Blood creatinine increased [Recovered/Resolved]
  - International normalised ratio increased [Recovered/Resolved]
  - Off label use [Unknown]
  - Carbon dioxide combining power abnormal [Unknown]
  - Blood fibrinogen decreased [Unknown]
  - Blood bilirubin increased [Recovered/Resolved]
  - Product use in unapproved indication [Unknown]
  - Bilirubin conjugated increased [Recovered/Resolved]

NARRATIVE: CASE EVENT DATE: 201710
